FAERS Safety Report 4813367-7 (Version None)
Quarter: 2005Q4

REPORT INFORMATION
  Report Type: 
  Country: None (occurrence: None)
  Receive Date: 20051028
  Receipt Date: 20050510
  Transmission Date: 20060501
  Serious: No
  Sender: FDA-Public Use
  Company Number: US-GLAXOSMITHKLINE-A0557973A

PATIENT
  Age: 34 Year
  Sex: Female
  Weight: 84.1 kg

DRUGS (10)
  1. ADVAIR DISKUS 100/50 [Suspect]
     Indication: ASTHMA
     Dosage: 1PUFF TWICE PER DAY
     Route: 055
  2. NASACORT [Concomitant]
     Indication: MULTIPLE ALLERGIES
     Dosage: 1SPR TWICE PER DAY
     Route: 045
  3. ALLEGRA [Concomitant]
     Indication: MULTIPLE ALLERGIES
     Dosage: 180MG PER DAY
     Route: 048
  4. SINGULAIR [Concomitant]
     Indication: ASTHMA
     Dosage: 10MG PER DAY
     Route: 048
  5. NEXIUM [Concomitant]
     Dosage: 20MG PER DAY
     Route: 048
  6. PATANOL [Concomitant]
     Indication: MULTIPLE ALLERGIES
     Dosage: 1DROP AS REQUIRED
     Route: 047
  7. XOPENEX [Concomitant]
     Indication: ASTHMA
     Route: 055
  8. LEVAQUIN [Concomitant]
     Dosage: 500MG PER DAY
     Route: 048
     Dates: start: 20050430, end: 20050513
  9. ALBUTEROL [Concomitant]
     Indication: ASTHMA
     Route: 055
  10. AMOXICILLIN [Concomitant]
     Dosage: 250MG THREE TIMES PER DAY
     Route: 048
     Dates: start: 20050419, end: 20050426

REACTIONS (5)
  - DYSPNOEA [None]
  - ILL-DEFINED DISORDER [None]
  - PEAK EXPIRATORY FLOW RATE INCREASED [None]
  - PHARMACEUTICAL PRODUCT COMPLAINT [None]
  - SINUSITIS [None]
